FAERS Safety Report 8791005 (Version 1)
Quarter: 2012Q4

REPORT INFORMATION
  Report Type: Spontaneous
  Country: US (occurrence: None)
  Receive Date: 20120907
  Receipt Date: 20120907
  Transmission Date: 20130627
  Serious: Yes (Hospitalization, Other)
  Sender: FDA-Public Use
  Company Number: 2012P1055691

PATIENT
  Age: 78 Year
  Sex: Female

DRUGS (5)
  1. DIMECLOCYCLINE [Suspect]
  2. METHOTREXATE [Concomitant]
  3. NAMENDA [Concomitant]
  4. MIRTAZAPINE [Concomitant]
  5. BACTRIM [Concomitant]

REACTIONS (9)
  - Hypernatraemia [None]
  - Mental status changes [None]
  - Convulsion [None]
  - Asthenia [None]
  - Thirst [None]
  - Mucosal dryness [None]
  - Blood chloride increased [None]
  - Haematocrit decreased [None]
  - Weight increased [None]
